FAERS Safety Report 7830095-4 (Version None)
Quarter: 2011Q4

REPORT INFORMATION
  Report Type: 
  Country: None (occurrence: None)
  Receive Date: 20111021
  Receipt Date: 20111011
  Transmission Date: 20120403
  Serious: Yes (Hospitalization)
  Sender: FDA-Public Use
  Company Number: TR-US-EMD SERONO, INC.-7089068

PATIENT
  Sex: Female
  Weight: 54 kg

DRUGS (3)
  1. ESCITALOPRAM [Suspect]
     Indication: DEPRESSION
     Route: 048
     Dates: start: 20110601
  2. LYRICA [Suspect]
     Indication: MUSCLE SPASMS
     Route: 048
     Dates: start: 20110601, end: 20111010
  3. REBIF [Suspect]
     Indication: RELAPSING-REMITTING MULTIPLE SCLEROSIS
     Route: 058
     Dates: start: 20110601

REACTIONS (3)
  - THROMBOCYTOPENIA [None]
  - FATIGUE [None]
  - ASTHENIA [None]
